FAERS Safety Report 16567127 (Version 3)
Quarter: 2019Q3

REPORT INFORMATION
  Report Type: Report from Study
  Country: JP (occurrence: JP)
  Receive Date: 20190712
  Receipt Date: 20190927
  Transmission Date: 20191004
  Serious: Yes (Death, Life-Threatening, Hospitalization, Other)
  Sender: FDA-Public Use
  Company Number: JP-CELGENEUS-JPN-20190703312

PATIENT
  Age: 66 Year
  Sex: Female
  Weight: 47 kg

DRUGS (3)
  1. ISTODAX [Suspect]
     Active Substance: ROMIDEPSIN
     Indication: PERIPHERAL T-CELL LYMPHOMA UNSPECIFIED
     Route: 041
     Dates: start: 20190705, end: 20190705
  2. FLUCONAZOLE. [Concomitant]
     Active Substance: FLUCONAZOLE
     Indication: PROPHYLAXIS
     Dosage: UNKNOWN
     Route: 048
  3. BACTRAMIN [Concomitant]
     Active Substance: SULFAMETHOXAZOLE\TRIMETHOPRIM
     Indication: PROPHYLAXIS
     Dosage: UNKNOWN
     Route: 048

REACTIONS (14)
  - Hepatic function abnormal [Recovered/Resolved]
  - Platelet count decreased [Recovering/Resolving]
  - Hyperuricaemia [Recovering/Resolving]
  - Cardio-respiratory arrest [Recovered/Resolved]
  - Cardiac failure congestive [Recovering/Resolving]
  - Peripheral T-cell lymphoma unspecified [Fatal]
  - Neutrophil count decreased [Recovered/Resolved]
  - Arrhythmia [Recovered/Resolved with Sequelae]
  - Ventricular tachycardia [Recovering/Resolving]
  - Tumour lysis syndrome [Unknown]
  - Atrial fibrillation [Not Recovered/Not Resolved]
  - White blood cell count decreased [Recovered/Resolved]
  - Blood lactate dehydrogenase increased [Recovering/Resolving]
  - Bundle branch block left [Not Recovered/Not Resolved]

NARRATIVE: CASE EVENT DATE: 20190705
